FAERS Safety Report 19782206 (Version 1)
Quarter: 2021Q3

REPORT INFORMATION
  Report Type: Spontaneous
  Country: IT (occurrence: IT)
  Receive Date: 20210902
  Receipt Date: 20210902
  Transmission Date: 20211014
  Serious: Yes (Other)
  Sender: FDA-Public Use
  Company Number: IT-BAUSCH-BL-2021-029283

PATIENT
  Age: 17 Year
  Sex: Female
  Weight: 56 kg

DRUGS (1)
  1. NORMIX [Suspect]
     Active Substance: RIFAXIMIN
     Indication: GASTROENTERITIS
     Route: 048
     Dates: start: 20210604, end: 20210604

REACTIONS (9)
  - Gastroenteritis [Recovering/Resolving]
  - Dyspepsia [Recovering/Resolving]
  - Headache [Recovering/Resolving]
  - Haematochezia [Recovering/Resolving]
  - Chest pain [Recovering/Resolving]
  - Neck pain [Recovering/Resolving]
  - Hyperhidrosis [Recovering/Resolving]
  - Arthralgia [Recovering/Resolving]
  - Insomnia [Recovering/Resolving]

NARRATIVE: CASE EVENT DATE: 20210605
